FAERS Safety Report 25646819 (Version 1)
Quarter: 2025Q3

REPORT INFORMATION
  Report Type: Spontaneous
  Country: US (occurrence: US)
  Receive Date: 20250805
  Receipt Date: 20250805
  Transmission Date: 20251020
  Serious: No
  Sender: ABBVIE
  Company Number: US-ABBVIE-6401412

PATIENT

DRUGS (1)
  1. RINVOQ [Suspect]
     Active Substance: UPADACITINIB
     Indication: Product used for unknown indication
     Route: 048
     Dates: start: 20250721

REACTIONS (4)
  - Skin tightness [Not Recovered/Not Resolved]
  - Rash macular [Unknown]
  - Skin warm [Unknown]
  - Sunburn [Not Recovered/Not Resolved]

NARRATIVE: CASE EVENT DATE: 20250729
